FAERS Safety Report 21309992 (Version 2)
Quarter: 2022Q3

REPORT INFORMATION
  Report Type: Report from Study
  Country: US (occurrence: US)
  Receive Date: 20220909
  Receipt Date: 20220913
  Transmission Date: 20221027
  Serious: Yes (Death, Other)
  Sender: FDA-Public Use
  Company Number: US-PPDUS-2022ZX001022

PATIENT
  Age: 5 Year
  Sex: Female
  Weight: 18.7 kg

DRUGS (1)
  1. FINTEPLA [Suspect]
     Active Substance: FENFLURAMINE
     Indication: Severe myoclonic epilepsy of infancy
     Dosage: 2.8 MILLILITER, 2X/DAY (BID)
     Route: 048
     Dates: start: 20210826

REACTIONS (2)
  - Death [Fatal]
  - Status epilepticus [Unknown]

NARRATIVE: CASE EVENT DATE: 20220810
